FAERS Safety Report 15726091 (Version 1)
Quarter: 2018Q4

REPORT INFORMATION
  Report Type: Spontaneous
  Country: US (occurrence: US)
  Receive Date: 20181216
  Receipt Date: 20181216
  Transmission Date: 20190205
  Serious: Yes (Hospitalization, Other)
  Sender: FDA-Public Use
  Company Number: US-SUPERNUS PHARMACEUTICALS, INC.-2018SUP00269

PATIENT
  Age: 53 Year
  Sex: Female

DRUGS (15)
  1. POTASSIUM [Concomitant]
     Active Substance: POTASSIUM
  2. FISH OIL [Concomitant]
     Active Substance: FISH OIL
  3. LEXAPRO [Concomitant]
     Active Substance: ESCITALOPRAM OXALATE
  4. BISOPROLOL [Concomitant]
     Active Substance: BISOPROLOL
  5. METFORMIN [Concomitant]
     Active Substance: METFORMIN HYDROCHLORIDE
  6. PRENATAL VITAMIN [Concomitant]
     Active Substance: VITAMINS
  7. ASPIRIN. [Concomitant]
     Active Substance: ASPIRIN
  8. PROZAC [Concomitant]
     Active Substance: FLUOXETINE HYDROCHLORIDE
  9. TROKENDI XR [Suspect]
     Active Substance: TOPIRAMATE
     Indication: MIGRAINE PROPHYLAXIS
     Dosage: 25 MG, 1X/DAY AT BEDTIME
     Route: 048
     Dates: start: 20180909, end: 20180912
  10. LYRICA [Concomitant]
     Active Substance: PREGABALIN
  11. OXYBUTYNIN ER [Concomitant]
     Active Substance: OXYBUTYNIN
  12. XANAX [Concomitant]
     Active Substance: ALPRAZOLAM
  13. VITAMIN D [Concomitant]
     Active Substance: CHOLECALCIFEROL
  14. FENOFIBRATE. [Concomitant]
     Active Substance: FENOFIBRATE
  15. BUMEX [Concomitant]
     Active Substance: BUMETANIDE

REACTIONS (4)
  - Hypoaesthesia [Not Recovered/Not Resolved]
  - Dyspnoea [Recovering/Resolving]
  - Tremor [Not Recovered/Not Resolved]
  - Chest discomfort [Unknown]

NARRATIVE: CASE EVENT DATE: 201809
